FAERS Safety Report 20679219 (Version 1)
Quarter: 2022Q2

REPORT INFORMATION
  Report Type: Spontaneous
  Country: US (occurrence: None)
  Receive Date: 20220405
  Receipt Date: 20220405
  Transmission Date: 20220720
  Serious: Yes (Other)
  Sender: FDA-Public Use
  Company Number: None

PATIENT
  Age: 55 Year
  Sex: Male
  Weight: 86.2 kg

DRUGS (1)
  1. BEBTELOVIMAB [Suspect]
     Active Substance: BEBTELOVIMAB
     Indication: COVID-19
     Dates: start: 20220404, end: 20220404

REACTIONS (7)
  - Infusion related reaction [None]
  - Erythema [None]
  - Urticaria [None]
  - Pruritus [None]
  - Lip swelling [None]
  - Paraesthesia oral [None]
  - Paraesthesia [None]

NARRATIVE: CASE EVENT DATE: 20220404
